FAERS Safety Report 7778038-6 (Version None)
Quarter: 2011Q3

REPORT INFORMATION
  Report Type: 
  Country: None (occurrence: None)
  Receive Date: 20110926
  Receipt Date: 20110920
  Transmission Date: 20111222
  Serious: Yes (Hospitalization)
  Sender: FDA-Public Use
  Company Number: BR-BAYER-200922374LA

PATIENT
  Age: 48 Year
  Sex: Female

DRUGS (12)
  1. AZATHIOPRINE [Concomitant]
     Indication: MULTIPLE SCLEROSIS
     Route: 048
     Dates: start: 20050101
  2. ACETYLSALICYLIC ACID SRT [Concomitant]
     Indication: ISCHAEMIC HEART DISEASE PROPHYLAXIS
  3. ENALAPRIL MALEATE [Concomitant]
     Indication: HYPERTENSION
     Route: 048
     Dates: start: 20090801
  4. CAPTOPRIL [Concomitant]
     Indication: HYPERTENSION
     Route: 048
     Dates: start: 20020101, end: 20090815
  5. SERTRALINE HYDROCHLORIDE [Concomitant]
     Indication: DEPRESSION
     Dosage: 1 TABLET IN THE MORNING
     Route: 048
     Dates: start: 20080818
  6. SIMVASTATIN [Concomitant]
     Indication: BLOOD CHOLESTEROL INCREASED
     Route: 048
     Dates: start: 20090801, end: 20091015
  7. SIMVASTATIN [Concomitant]
     Dosage: UNK
  8. BETASERON [Suspect]
     Dosage: UNK
  9. BETASERON [Suspect]
     Indication: SECONDARY PROGRESSIVE MULTIPLE SCLEROSIS
     Dosage: BETAJECT
     Route: 058
     Dates: start: 20010101, end: 20101218
  10. CLORANA [Concomitant]
     Indication: HYPERTENSION
     Route: 048
     Dates: start: 20000101
  11. CORTICOSTEROID NOS [Concomitant]
     Dosage: UNK
     Dates: start: 20060101
  12. AZATHIOPRINE [Concomitant]

REACTIONS (41)
  - HEADACHE [None]
  - CRYING [None]
  - SKIN DISCOLOURATION [None]
  - RHINORRHOEA [None]
  - INJECTION SITE RASH [None]
  - URINARY INCONTINENCE [None]
  - INSOMNIA [None]
  - ABDOMINAL PAIN UPPER [None]
  - EAR PAIN [None]
  - DECREASED APPETITE [None]
  - WEIGHT DECREASED [None]
  - CHEST PAIN [None]
  - FALL [None]
  - DERMATITIS [None]
  - DYSPNOEA [None]
  - SENSATION OF HEAVINESS [None]
  - INJECTION SITE HAEMATOMA [None]
  - HYPOAESTHESIA [None]
  - HYPERSENSITIVITY [None]
  - BACK PAIN [None]
  - CONSTIPATION [None]
  - MALIGNANT MELANOMA [None]
  - FORMICATION [None]
  - PARAESTHESIA [None]
  - INFLUENZA LIKE ILLNESS [None]
  - MUSCULOSKELETAL CHEST PAIN [None]
  - MULTIPLE SCLEROSIS [None]
  - ANXIETY [None]
  - MULTIPLE SCLEROSIS RELAPSE [None]
  - MEMORY IMPAIRMENT [None]
  - MUSCULAR WEAKNESS [None]
  - GAIT DISTURBANCE [None]
  - ALLERGIC OEDEMA [None]
  - RIB FRACTURE [None]
  - PYREXIA [None]
  - INJECTION SITE PAIN [None]
  - DEPRESSION [None]
  - BLOOD CHOLESTEROL INCREASED [None]
  - HYPERTENSION [None]
  - RENAL PAIN [None]
  - INJECTION SITE MASS [None]
